FAERS Safety Report 5232243-1 (Version None)
Quarter: 2007Q1

REPORT INFORMATION
  Report Type: 
  Country: None (occurrence: None)
  Receive Date: 20070207
  Receipt Date: 20070202
  Transmission Date: 20070707
  Serious: Yes (Death)
  Sender: FDA-Public Use
  Company Number: PHNU2006DE03974

PATIENT
  Age: 70 Year
  Sex: Female
  Weight: 105 kg

DRUGS (3)
  1. TEGRETOL [Suspect]
     Dosage: 200 MG/DAY
     Route: 048
  2. ATOSIL [Concomitant]
     Dosage: UNK, UNK
  3. RISPERDAL [Concomitant]
     Indication: SCHIZOPHRENIA
     Dosage: 0.5 MG/DAY
     Route: 048

REACTIONS (7)
  - ACUTE RESPIRATORY DISTRESS SYNDROME [None]
  - MULTI-ORGAN FAILURE [None]
  - PNEUMONIA [None]
  - PULMONARY FIBROSIS [None]
  - PYREXIA [None]
  - RESPIRATORY FAILURE [None]
  - SEPTIC SHOCK [None]
